FAERS Safety Report 7796284-2 (Version None)
Quarter: 2011Q4

REPORT INFORMATION
  Report Type: 
  Country: None (occurrence: None)
  Receive Date: 20111004
  Receipt Date: 20110916
  Transmission Date: 20120403
  Serious: Yes (Other)
  Sender: FDA-Public Use
  Company Number: PHHY2011BR83066

PATIENT
  Age: 59 Year
  Sex: Male

DRUGS (2)
  1. DIOVAN [Suspect]
     Indication: HYPERTENSION
     Dosage: UNK
     Dates: start: 20100401
  2. DILTIAZEM HCL [Suspect]

REACTIONS (4)
  - ATRIAL FIBRILLATION [None]
  - PROTEINURIA [None]
  - PALPITATIONS [None]
  - ARRHYTHMIA [None]
